FAERS Safety Report 24403581 (Version 1)
Quarter: 2024Q4

REPORT INFORMATION
  Report Type: Spontaneous
  Country: RU (occurrence: RU)
  Receive Date: 20241007
  Receipt Date: 20241007
  Transmission Date: 20250114
  Serious: No
  Sender: ROCHE
  Company Number: RU-ROCHE-3479119

PATIENT
  Sex: Male

DRUGS (1)
  1. OBINUTUZUMAB [Suspect]
     Active Substance: OBINUTUZUMAB
     Indication: Product used for unknown indication
     Dosage: ON 27/OCT/2023 AND 17/NOV/2023, RECEIVED DOSE OF OBINUTUZUMAB.
     Route: 065
     Dates: start: 20230912

REACTIONS (1)
  - Disease progression [Unknown]
